FAERS Safety Report 24771676 (Version 1)
Quarter: 2024Q4

REPORT INFORMATION
  Report Type: Spontaneous
  Country: CA (occurrence: CA)
  Receive Date: 20241224
  Receipt Date: 20241224
  Transmission Date: 20250114
  Serious: Yes (Other)
  Sender: PFIZER
  Company Number: CA-PFIZER INC-202400328919

PATIENT
  Age: 81 Year
  Sex: Female

DRUGS (3)
  1. METHOTREXATE SODIUM [Suspect]
     Active Substance: METHOTREXATE SODIUM
     Indication: Arthritis
     Dosage: 15 MG, WEEKLY
     Route: 065
  2. PREDNISONE [Suspect]
     Active Substance: PREDNISONE
  3. MESALAMINE [Suspect]
     Active Substance: MESALAMINE

REACTIONS (2)
  - Colitis [Unknown]
  - Condition aggravated [Unknown]
